FAERS Safety Report 16300848 (Version 6)
Quarter: 2019Q2

REPORT INFORMATION
  Report Type: Report from Study
  Country: US (occurrence: US)
  Receive Date: 20190510
  Receipt Date: 20190618
  Transmission Date: 20190711
  Serious: Yes (Hospitalization, Other)
  Sender: FDA-Public Use
  Company Number: US-PFIZER INC-2019195079

PATIENT
  Age: 63 Year
  Sex: Male

DRUGS (86)
  1. ROSUVASTATIN. [Concomitant]
     Active Substance: ROSUVASTATIN
     Dosage: UNK
  2. ALBUMIN [Concomitant]
     Active Substance: ALBUMIN HUMAN
     Dosage: UNK
  3. CALCIUM [Concomitant]
     Active Substance: CALCIUM
     Dosage: UNK
  4. CEFAZOLIN [Concomitant]
     Active Substance: CEFAZOLIN
     Dosage: UNK
  5. CEFEPIME [Concomitant]
     Active Substance: CEFEPIME HYDROCHLORIDE
     Dosage: UNK
  6. CLONIDINE. [Concomitant]
     Active Substance: CLONIDINE
     Dosage: UNK
  7. METOPROLOL. [Concomitant]
     Active Substance: METOPROLOL
     Dosage: UNK
  8. PROCHLORPERAZINE. [Concomitant]
     Active Substance: PROCHLORPERAZINE
     Dosage: UNK
  9. SUCRALFATE. [Concomitant]
     Active Substance: SUCRALFATE
     Dosage: UNK
  10. RITUXIMAB. [Concomitant]
     Active Substance: RITUXIMAB
     Dosage: UNK
  11. ACETAMINOPHEN. [Concomitant]
     Active Substance: ACETAMINOPHEN
     Dosage: UNK
  12. PIPERACILLIN AND TAZOBACTAM [Concomitant]
     Active Substance: PIPERACILLIN SODIUM\TAZOBACTAM SODIUM
     Dosage: UNK
  13. DOCUSATE PLUS SENNA [Concomitant]
     Active Substance: DOCUSATE SODIUM\SENNOSIDES A AND B
     Dosage: UNK
  14. INSULIN [Concomitant]
     Active Substance: INSULIN NOS
     Dosage: UNK
  15. LACTATED RINGERS SOLUTION [Concomitant]
     Active Substance: CALCIUM CHLORIDE\POTASSIUM CHLORIDE\SODIUM CHLORIDE\SODIUM LACTATE
     Dosage: UNK
  16. MICAFUNGIN. [Concomitant]
     Active Substance: MICAFUNGIN SODIUM
     Dosage: UNK
  17. NALOXONE [Concomitant]
     Active Substance: NALOXONE
     Dosage: UNK
  18. NYSTATIN. [Concomitant]
     Active Substance: NYSTATIN
     Dosage: UNK
  19. PANTOPRAZOLE [Concomitant]
     Active Substance: PANTOPRAZOLE
     Dosage: UNK
  20. NIFEDIPINE. [Concomitant]
     Active Substance: NIFEDIPINE
     Dosage: UNK
  21. SODIUM PHOSPHATE [Concomitant]
     Active Substance: SODIUM PHOSPHATE
     Dosage: UNK
  22. ANTILYMPHOCYTE IMMUNOGLOBULINS [Suspect]
     Active Substance: THYMOCYTE IMMUNE GLOBULIN NOS
     Dosage: UNK
  23. ONDANSETRON [Concomitant]
     Active Substance: ONDANSETRON
     Dosage: UNK
  24. OXYCODONE [Concomitant]
     Active Substance: OXYCODONE
     Dosage: UNK
  25. FUROSEMIDE. [Concomitant]
     Active Substance: FUROSEMIDE
     Dosage: UNK
  26. ROPIVACAINE. [Concomitant]
     Active Substance: ROPIVACAINE HYDROCHLORIDE
     Dosage: UNK
  27. VANCOMYCIN [Concomitant]
     Active Substance: VANCOMYCIN
     Dosage: UNK
  28. CARVEDILOL. [Concomitant]
     Active Substance: CARVEDILOL
     Dosage: UNK
  29. INSULIN GLARGINE [Concomitant]
     Active Substance: INSULIN GLARGINE
     Dosage: UNK
  30. TACROLIMUS. [Concomitant]
     Active Substance: TACROLIMUS
     Dosage: UNK
  31. PREDNISONE. [Concomitant]
     Active Substance: PREDNISONE
     Dosage: UNK
  32. HEPARIN [Concomitant]
     Active Substance: HEPARIN SODIUM
     Dosage: UNK
  33. CALCIUM GLUCONATE. [Concomitant]
     Active Substance: CALCIUM GLUCONATE
     Dosage: UNK
  34. DESMOPRESSIN [Concomitant]
     Active Substance: DESMOPRESSIN
     Dosage: UNK
  35. FAMOTIDINE. [Concomitant]
     Active Substance: FAMOTIDINE
     Dosage: UNK
  36. HYDRALAZINE [Concomitant]
     Active Substance: HYDRALAZINE HYDROCHLORIDE
     Dosage: UNK
  37. MAGNESIUM SULFATE. [Concomitant]
     Active Substance: MAGNESIUM SULFATE
     Dosage: UNK
  38. METOCLOPRAMIDE. [Concomitant]
     Active Substance: METOCLOPRAMIDE
     Dosage: UNK
  39. RED BLOOD CELLS-LEUKOCYTES REDUCED [Concomitant]
     Active Substance: HUMAN RED BLOOD CELL
     Dosage: UNK
  40. MIDAZOLAM [Concomitant]
     Active Substance: MIDAZOLAM HYDROCHLORIDE
     Dosage: UNK
  41. LOPERAMIDE [Concomitant]
     Active Substance: LOPERAMIDE
     Dosage: UNK
  42. RANITIDINE. [Concomitant]
     Active Substance: RANITIDINE
     Dosage: UNK
  43. DEXTROSE. [Concomitant]
     Active Substance: DEXTROSE
     Dosage: UNK
  44. DIAZEPAM. [Concomitant]
     Active Substance: DIAZEPAM
     Dosage: UNK
  45. MAGNESIUM [Concomitant]
     Active Substance: MAGNESIUM
     Dosage: UNK
  46. METOPROLOL TARTRATE. [Concomitant]
     Active Substance: METOPROLOL TARTRATE
     Dosage: UNK
  47. CHOLECALCIFEROL [Concomitant]
     Active Substance: CHOLECALCIFEROL
     Dosage: UNK
  48. EPHEDRINE. [Concomitant]
     Active Substance: EPHEDRINE
     Dosage: UNK
  49. POTASSIUM CHLORIDE. [Concomitant]
     Active Substance: POTASSIUM CHLORIDE
     Dosage: UNK
  50. PLATELETS [Concomitant]
     Active Substance: HUMAN PLATELET, ALLOGENIC
     Dosage: UNK
  51. TAMSULOSIN [Concomitant]
     Active Substance: TAMSULOSIN
     Dosage: UNK
  52. MIRTAZAPINE. [Concomitant]
     Active Substance: MIRTAZAPINE
     Dosage: UNK
  53. DAPTOMYCIN. [Concomitant]
     Active Substance: DAPTOMYCIN
     Dosage: UNK
  54. HYDROMORPHONE HYDROCHLORIDE. [Suspect]
     Active Substance: HYDROMORPHONE HYDROCHLORIDE
     Dosage: UNK
  55. ALBUTEROL [SALBUTAMOL] [Concomitant]
     Active Substance: ALBUTEROL
     Dosage: UNK
  56. CALCIUM ACETATE. [Concomitant]
     Active Substance: CALCIUM ACETATE
     Dosage: UNK
  57. BACITRACIN. [Concomitant]
     Active Substance: BACITRACIN
     Dosage: UNK
  58. CLOPIDOGREL [Concomitant]
     Active Substance: CLOPIDOGREL BISULFATE
     Dosage: UNK
  59. SODIUM CHLORIDE. [Concomitant]
     Active Substance: SODIUM CHLORIDE
     Dosage: UNK
  60. ISOPHANE INSULIN [Concomitant]
     Active Substance: INSULIN NOS
     Dosage: UNK
  61. IMMUNE GLOBULIN NOS [Concomitant]
     Active Substance: IMMUNE GLOBULIN NOS
     Dosage: UNK
  62. MYCOPHENOLATE SODIUM [Concomitant]
     Active Substance: MYCOPHENOLATE SODIUM
     Dosage: UNK
  63. ALPRAZOLAM. [Concomitant]
     Active Substance: ALPRAZOLAM
     Dosage: UNK
  64. CIPROFLOXACIN. [Concomitant]
     Active Substance: CIPROFLOXACIN
     Dosage: UNK
  65. DEXTROSE AND SODIUM CHLORIDE [Concomitant]
     Active Substance: DEXTROSE MONOHYDRATE\SODIUM CHLORIDE
     Dosage: UNK
  66. ASPIRIN [ACETYLSALICYLIC ACID] [Concomitant]
     Active Substance: ASPIRIN
     Dosage: UNK
  67. LIDOCAINE. [Concomitant]
     Active Substance: LIDOCAINE
     Dosage: UNK
  68. METRONIDAZOLE. [Concomitant]
     Active Substance: METRONIDAZOLE
     Dosage: UNK
  69. TRIMETHOPRIM SULFAMETHOXAZOLE [Concomitant]
     Active Substance: SULFAMETHOXAZOLE\TRIMETHOPRIM
     Dosage: UNK
  70. MYCOPHENOLIC ACID. [Concomitant]
     Active Substance: MYCOPHENOLIC ACID
     Dosage: UNK
  71. BLINDED THERAPY [Suspect]
     Active Substance: INVESTIGATIONAL PRODUCT
     Dosage: 30 ML, SINGLE
     Route: 042
     Dates: start: 20170325
  72. BENADRYL [Concomitant]
     Active Substance: DIPHENHYDRAMINE HYDROCHLORIDE
     Dosage: UNK
  73. POLYETHYLENE GLYCOL [Concomitant]
     Active Substance: POLYETHYLENE GLYCOLS
     Dosage: UNK
  74. SULFAMETHOXAZOLE [Concomitant]
     Active Substance: SULFAMETHOXAZOLE
     Dosage: UNK
  75. VALGANCICLOVIR. [Concomitant]
     Active Substance: VALGANCICLOVIR
     Dosage: UNK
  76. BISACODYL. [Concomitant]
     Active Substance: BISACODYL
     Dosage: UNK
  77. DARBEPOETIN ALFA [Concomitant]
     Active Substance: DARBEPOETIN ALFA
     Dosage: UNK
  78. DIPHENHYDRAMINE. [Concomitant]
     Active Substance: DIPHENHYDRAMINE
     Dosage: UNK
  79. GANCICLOVIR. [Concomitant]
     Active Substance: GANCICLOVIR
     Dosage: UNK
  80. INSULIN LISPRO [Concomitant]
     Active Substance: INSULIN LISPRO
     Dosage: UNK
  81. TERAZOSIN [Concomitant]
     Active Substance: TERAZOSIN\TERAZOSIN HYDROCHLORIDE
     Dosage: UNK
  82. DOCUSATE SODIUM. [Concomitant]
     Active Substance: DOCUSATE SODIUM
     Dosage: UNK
  83. CALCIUM CARBONATE. [Concomitant]
     Active Substance: CALCIUM CARBONATE
     Dosage: UNK
  84. POTASSIUM PHOSPHATES [Concomitant]
     Active Substance: POTASSIUM PHOSPHATE, DIBASIC\POTASSIUM PHOSPHATE, MONOBASIC
     Dosage: UNK
  85. DEXAMETHASONE. [Concomitant]
     Active Substance: DEXAMETHASONE
     Dosage: UNK
  86. BASILIXIMAB [Concomitant]
     Active Substance: BASILIXIMAB
     Dosage: UNK

REACTIONS (6)
  - Sepsis [Recovered/Resolved]
  - Delayed graft function [Recovered/Resolved with Sequelae]
  - Mental status changes [Recovered/Resolved]
  - Acute myocardial infarction [Recovered/Resolved]
  - Transplant rejection [Recovered/Resolved]
  - Graft thrombosis [Recovered/Resolved with Sequelae]

NARRATIVE: CASE EVENT DATE: 20170327
